FAERS Safety Report 8480221-1 (Version None)
Quarter: 2012Q2

REPORT INFORMATION
  Report Type: 
  Country: None (occurrence: None)
  Receive Date: 20120629
  Receipt Date: 20120622
  Transmission Date: 20120825
  Serious: Yes (Life-Threatening, Hospitalization)
  Sender: FDA-Public Use
  Company Number: FR-RB-041762-12

PATIENT
  Age: 39 Year
  Sex: Male

DRUGS (2)
  1. SUBUTEX [Suspect]
     Route: 048
     Dates: start: 20040101
  2. SUBUTEX [Suspect]
     Indication: DRUG DEPENDENCE
     Dosage: OCCASIONALLY UNKNOWN DOSAGE
     Route: 042

REACTIONS (4)
  - INTENTIONAL DRUG MISUSE [None]
  - DYSPNOEA [None]
  - SKIN NECROSIS [None]
  - PYREXIA [None]
